FAERS Safety Report 5351399-3 (Version None)
Quarter: 2007Q2

REPORT INFORMATION
  Report Type: 
  Country: None (occurrence: None)
  Receive Date: 20070521
  Receipt Date: 20070221
  Transmission Date: 20071010
  Serious: No
  Sender: FDA-Public Use
  Company Number: WAES 0611USA02103

PATIENT
  Age: 81 Year
  Sex: Female
  Weight: 64.8644 kg

DRUGS (6)
  1. JANUVIA [Suspect]
     Indication: DIABETES MELLITUS
     Dosage: 100 MG/DAILY/PO
     Route: 048
     Dates: start: 20061027, end: 20061028
  2. ACTOS [Concomitant]
  3. LIPITOR [Concomitant]
  4. DIGOXIN [Concomitant]
  5. GLIPIZIDE [Concomitant]
  6. LISINOPRIL [Concomitant]

REACTIONS (2)
  - NAUSEA [None]
  - VOMITING [None]
